FAERS Safety Report 11514462 (Version 1)
Quarter: 2015Q3

REPORT INFORMATION
  Report Type: Spontaneous
  Country: AR (occurrence: AR)
  Receive Date: 20150916
  Receipt Date: 20150916
  Transmission Date: 20151125
  Serious: Yes (Hospitalization)
  Sender: FDA-Public Use
  Company Number: AR-PFIZER INC-2015306556

PATIENT
  Age: 5 Month
  Sex: Male

DRUGS (1)
  1. GENOTROPIN [Suspect]
     Active Substance: SOMATROPIN
     Indication: GROWTH HORMONE DEFICIENCY
     Dosage: 0.1 TO 0.5 MG, DAILY
     Dates: start: 20150803

REACTIONS (1)
  - Bronchial disorder [Recovered/Resolved]

NARRATIVE: CASE EVENT DATE: 2015
